FAERS Safety Report 16443741 (Version 3)
Quarter: 2019Q4

REPORT INFORMATION
  Report Type: Spontaneous
  Country: AE (occurrence: AE)
  Receive Date: 20190618
  Receipt Date: 20191105
  Transmission Date: 20200122
  Serious: Yes (Disabling, Other)
  Sender: FDA-Public Use
  Company Number: AE-SA-2019SA163939

PATIENT
  Age: 36 Year
  Sex: Female
  Weight: 72.3 kg

DRUGS (7)
  1. DUPIXENT [Suspect]
     Active Substance: DUPILUMAB
     Indication: DERMATITIS ATOPIC
     Dosage: 600 MG STAT
     Route: 058
     Dates: start: 20190424, end: 20190424
  2. DERMOVATE [Concomitant]
     Active Substance: CLOBETASOL
     Indication: DERMATITIS ATOPIC
     Dosage: LOCALY FOR 3 DAYS, DOD, BD
     Route: 061
     Dates: start: 20190424, end: 20190429
  3. DUPIXENT [Suspect]
     Active Substance: DUPILUMAB
     Dosage: 400 MG, QOW
     Route: 058
     Dates: start: 20190508, end: 2019
  4. DUPIXENT [Suspect]
     Active Substance: DUPILUMAB
     Dosage: UNK
     Dates: start: 2019, end: 20190627
  5. ELIDEL [Concomitant]
     Active Substance: PIMECROLIMUS
     Indication: DERMATITIS ATOPIC
     Dosage: LOCALY TWICE DAILY
     Route: 061
     Dates: start: 20190503, end: 20190518
  6. ADVANTAN [Concomitant]
     Active Substance: METHYLPREDNISOLONE ACEPONATE
     Indication: DERMATITIS ATOPIC
     Dosage: LOCALY FOR 3 DAYS, DOD, BD
     Route: 061
     Dates: start: 20190430, end: 20190503
  7. DEXTRAN [Concomitant]
     Active Substance: DEXTRAN
     Indication: DERMATITIS ATOPIC
     Dosage: LOCALY ON EYES DROPS THRICE DAILY
     Dates: start: 20190424, end: 20190630

REACTIONS (13)
  - Lymphocytic infiltration [Unknown]
  - Rash maculo-papular [Recovered/Resolved with Sequelae]
  - Eczema [Unknown]
  - Dermatitis contact [Recovered/Resolved with Sequelae]
  - Skin lesion [Recovered/Resolved with Sequelae]
  - Product use issue [Unknown]
  - Pain of skin [Unknown]
  - Erythema [Recovered/Resolved with Sequelae]
  - Condition aggravated [Unknown]
  - Oedema [Recovered/Resolved with Sequelae]
  - Skin mass [Unknown]
  - Urticarial vasculitis [Unknown]
  - Skin plaque [Unknown]

NARRATIVE: CASE EVENT DATE: 2019
